FAERS Safety Report 4559202-6 (Version None)
Quarter: 2005Q1

REPORT INFORMATION
  Report Type: 
  Country: None (occurrence: None)
  Receive Date: 20050121
  Receipt Date: 20050121
  Transmission Date: 20050727
  Serious: No
  Sender: FDA-Public Use
  Company Number: None

PATIENT
  Sex: Female
  Weight: 80 kg

DRUGS (10)
  1. CELECOXIB   200 MG CAP [Suspect]
     Indication: PAIN MANAGEMENT
     Dosage: 200 MG    TWICE DAILY    ORAL
     Route: 048
     Dates: start: 20040730, end: 20040803
  2. IV CONTRAST [Suspect]
     Indication: NUCLEAR MAGNETIC RESONANCE IMAGING BRAIN
     Dates: start: 20040729, end: 20040729
  3. ENOXAPARIN SODIUM [Concomitant]
  4. FUROSEMIDE [Concomitant]
  5. MS CONTIN [Concomitant]
  6. METOCLOPRAMIDE [Concomitant]
  7. ZOFRAN [Concomitant]
  8. VANCOMYCIN [Concomitant]
  9. PROTONIX [Concomitant]
  10. MARINOL [Concomitant]

REACTIONS (1)
  - BLOOD CREATININE INCREASED [None]
